FAERS Safety Report 20658800 (Version 1)
Quarter: 2022Q1

REPORT INFORMATION
  Report Type: Spontaneous
  Country: US (occurrence: US)
  Receive Date: 20220331
  Receipt Date: 20220331
  Transmission Date: 20220424
  Serious: No
  Sender: FDA-Public Use
  Company Number: US-NOVARTISTESTPH-NVSC2022US073108

PATIENT
  Sex: Female

DRUGS (1)
  1. LOSARTAN [Suspect]
     Active Substance: LOSARTAN
     Indication: Hypertension
     Dosage: 50 MG, QD
     Route: 065

REACTIONS (4)
  - Stress [Unknown]
  - Illness [Unknown]
  - Headache [Unknown]
  - Fatigue [Unknown]
